FAERS Safety Report 19133724 (Version 5)
Quarter: 2021Q4

REPORT INFORMATION
  Report Type: Spontaneous
  Country: US (occurrence: US)
  Receive Date: 20210414
  Receipt Date: 20211222
  Transmission Date: 20220303
  Serious: Yes (Hospitalization)
  Sender: FDA-Public Use
  Company Number: US-PFIZER INC-2020455908

PATIENT
  Age: 74 Year
  Sex: Male
  Weight: 77.098 kg

DRUGS (2)
  1. INLYTA [Suspect]
     Active Substance: AXITINIB
     Indication: Neoplasm malignant
     Dosage: UNK
  2. KEYTRUDA [Suspect]
     Active Substance: PEMBROLIZUMAB
     Dosage: UNK
     Dates: end: 202103

REACTIONS (4)
  - Gastric disorder [Unknown]
  - Weight decreased [Unknown]
  - Decreased appetite [Unknown]
  - Underweight [Unknown]
